FAERS Safety Report 8605533-X (Version None)
Quarter: 2012Q3

REPORT INFORMATION
  Report Type: 
  Country: None (occurrence: None)
  Receive Date: 20120820
  Receipt Date: 20120810
  Transmission Date: 20120928
  Serious: Yes (Other)
  Sender: FDA-Public Use
  Company Number: US-ASTRAZENECA-2010SE52824

PATIENT
  Age: 78 Year
  Sex: Female

DRUGS (2)
  1. NEXIUM [Suspect]
     Route: 048
  2. CRESTOR [Suspect]
     Route: 048
     Dates: start: 20100101, end: 20100701

REACTIONS (13)
  - ARTHRITIS [None]
  - PAIN [None]
  - MULTIPLE ALLERGIES [None]
  - COUGH [None]
  - CATARACT [None]
  - SPEECH DISORDER [None]
  - RENAL DISORDER [None]
  - DISABILITY [None]
  - URINARY TRACT INFECTION [None]
  - GASTROOESOPHAGEAL REFLUX DISEASE [None]
  - HEARING IMPAIRED [None]
  - OEDEMA PERIPHERAL [None]
  - OROPHARYNGEAL PAIN [None]
